FAERS Safety Report 9016958 (Version 1)
Quarter: 2013Q1

REPORT INFORMATION
  Report Type: Spontaneous
  Country: FR (occurrence: FR)
  Receive Date: 20130117
  Receipt Date: 20130117
  Transmission Date: 20140127
  Serious: Yes (Other)
  Sender: FDA-Public Use
  Company Number: FR-BRISTOL-MYERS SQUIBB COMPANY-17260886

PATIENT
  Age: 65 Year
  Sex: Male

DRUGS (3)
  1. HYDREA CAPS 500 MG [Suspect]
     Indication: POLYCYTHAEMIA VERA
     Dosage: 1999-OCT2011,03JAN12,75MG DAILY
     Route: 048
     Dates: start: 1999
  2. PEGASYS [Suspect]
     Indication: POLYCYTHAEMIA VERA
     Dosage: SOL INJ, 19.2857 MCG/D, 90MCG;DEC11-03JAN12;DOSE INCR TO 135 MCG/WEEK
     Route: 058
     Dates: start: 201112
  3. KARDEGIC [Suspect]
     Indication: POLYCYTHAEMIA VERA
     Dates: start: 1999, end: 201110

REACTIONS (2)
  - Squamous cell carcinoma of skin [Not Recovered/Not Resolved]
  - Myelofibrosis [Not Recovered/Not Resolved]
